FAERS Safety Report 8430152-8 (Version None)
Quarter: 2012Q2

REPORT INFORMATION
  Report Type: 
  Country: None (occurrence: None)
  Receive Date: 20120612
  Receipt Date: 20120604
  Transmission Date: 20120825
  Serious: Yes (Hospitalization)
  Sender: FDA-Public Use
  Company Number: US-JNJFOC-20120602576

PATIENT
  Sex: Female
  Weight: 97.52 kg

DRUGS (4)
  1. NUCYNTA [Suspect]
     Dosage: 50MG/EVERY 4 HOURS
     Route: 048
     Dates: start: 20120101
  2. ATENOLOL [Concomitant]
     Indication: BLOOD PRESSURE
     Dosage: 12.5MG/TABLET/25MG/1/2 TABLET DAILY/ORAL
     Route: 048
     Dates: start: 20100101
  3. NUCYNTA [Suspect]
     Indication: PRODUCT USED FOR UNKNOWN INDICATION
     Dosage: 50MG/EVERY 6 HOURS
     Route: 048
     Dates: start: 20120301, end: 20120101
  4. PHENERGAN [Concomitant]
     Indication: PROPHYLAXIS OF NAUSEA AND VOMITING
     Route: 065

REACTIONS (2)
  - DRUG EFFECT DECREASED [None]
  - VAGINAL HAEMORRHAGE [None]
